FAERS Safety Report 22217687 (Version 1)
Quarter: 2023Q2

REPORT INFORMATION
  Report Type: Spontaneous
  Country: US (occurrence: US)
  Receive Date: 20230417
  Receipt Date: 20230417
  Transmission Date: 20230722
  Serious: No
  Sender: FDA-Public Use
  Company Number: US-TAKEDA-2023TUS038039

PATIENT
  Age: 11 Year
  Sex: Male
  Weight: 48 kg

DRUGS (3)
  1. VYVANSE [Suspect]
     Active Substance: LISDEXAMFETAMINE DIMESYLATE
     Indication: Attention deficit hyperactivity disorder
     Dosage: 30 MILLIGRAM, QD
     Route: 065
  2. ADDERALL XR [Suspect]
     Active Substance: AMPHETAMINE ASPARTATE\AMPHETAMINE SULFATE\DEXTROAMPHETAMINE SACCHARATE\DEXTROAMPHETAMINE SULFATE
     Indication: Product used for unknown indication
     Dosage: UNK
     Route: 065
  3. GUANFACINE [Concomitant]
     Active Substance: GUANFACINE
     Dosage: 3 MILLIGRAM
     Route: 065

REACTIONS (4)
  - Drug ineffective [Unknown]
  - Product availability issue [Unknown]
  - Anger [Unknown]
  - Product use issue [Unknown]

NARRATIVE: CASE EVENT DATE: 20230314
